FAERS Safety Report 8381716 (Version 2)
Quarter: 2015Q1

REPORT INFORMATION
  Report Type: Report from Study
  Country: US (occurrence: US)
  Receive Date: 20120201
  Receipt Date: 20150223
  Transmission Date: 20150721
  Serious: Yes (Death)
  Sender: FDA-Public Use
  Company Number: US-ROCHE-1033985

PATIENT
  Sex: Female
  Weight: 58 kg

DRUGS (22)
  1. AVASTIN [Suspect]
     Active Substance: BEVACIZUMAB
     Indication: SMALL INTESTINE CARCINOMA
     Route: 042
  2. AVASTIN [Suspect]
     Active Substance: BEVACIZUMAB
     Route: 042
     Dates: start: 20070906
  3. AVASTIN [Suspect]
     Active Substance: BEVACIZUMAB
     Route: 042
     Dates: start: 20070817
  4. ATROPINE [Concomitant]
     Active Substance: ATROPINE
     Route: 058
  5. LORAZEPAM. [Concomitant]
     Active Substance: LORAZEPAM
     Route: 042
  6. EMEND [Concomitant]
     Active Substance: APREPITANT
     Route: 048
  7. DEXAMETHASONE. [Concomitant]
     Active Substance: DEXAMETHASONE
     Route: 042
  8. AVASTIN [Suspect]
     Active Substance: BEVACIZUMAB
     Route: 042
     Dates: start: 20070920
  9. AVASTIN [Suspect]
     Active Substance: BEVACIZUMAB
     Route: 042
     Dates: start: 20071101
  10. ALOXI [Concomitant]
     Active Substance: PALONOSETRON HYDROCHLORIDE
     Route: 042
  11. PEPCID [Concomitant]
     Active Substance: FAMOTIDINE
  12. ONDANSETRON [Concomitant]
     Active Substance: ONDANSETRON
  13. GRANISETRON [Concomitant]
     Active Substance: GRANISETRON
     Route: 048
  14. FLUOROURACIL. [Concomitant]
     Active Substance: FLUOROURACIL
     Route: 042
  15. AVASTIN [Suspect]
     Active Substance: BEVACIZUMAB
     Route: 042
     Dates: start: 20080221
  16. LEUCOVORIN CALCIUM. [Concomitant]
     Active Substance: LEUCOVORIN CALCIUM
     Route: 042
  17. PEGFILGRASTIM [Concomitant]
     Active Substance: PEGFILGRASTIM
     Route: 042
  18. ATIVAN [Concomitant]
     Active Substance: LORAZEPAM
  19. DECADRON [Concomitant]
     Active Substance: DEXAMETHASONE
  20. FAMOTIDINE. [Concomitant]
     Active Substance: FAMOTIDINE
     Route: 042
  21. AVASTIN [Suspect]
     Active Substance: BEVACIZUMAB
     Route: 042
     Dates: start: 20071011
  22. IRINOTECAN [Concomitant]
     Active Substance: IRINOTECAN
     Route: 042

REACTIONS (11)
  - Vomiting [Unknown]
  - Diarrhoea [Unknown]
  - Death [Fatal]
  - Off label use [Unknown]
  - Weight increased [Unknown]
  - Poor quality sleep [Unknown]
  - Bone marrow failure [Unknown]
  - Decreased appetite [Unknown]
  - Nausea [Unknown]
  - Dizziness exertional [Unknown]
  - Fatigue [Unknown]
